FAERS Safety Report 8160663-4 (Version None)
Quarter: 2012Q1

REPORT INFORMATION
  Report Type: 
  Country: None (occurrence: None)
  Receive Date: 20120223
  Receipt Date: 20120215
  Transmission Date: 20120608
  Serious: Yes (Hospitalization, Other)
  Sender: FDA-Public Use
  Company Number: US-ASTRAZENECA-2010SE37888

PATIENT
  Age: 41 Year
  Sex: Female
  Weight: 57.6 kg

DRUGS (5)
  1. LORTAB [Concomitant]
     Indication: NEURALGIA
     Dosage: 10/650 DAILY
  2. XANEX [Concomitant]
     Indication: ANXIETY DISORDER
  3. PAXIL [Concomitant]
     Indication: DEPRESSION
  4. SEROQUEL XR [Suspect]
     Indication: BIPOLAR DISORDER
     Route: 048
  5. SEROQUEL XR [Suspect]
     Indication: DEPRESSION
     Route: 048

REACTIONS (6)
  - DRUG DOSE OMISSION [None]
  - MENTAL DISORDER [None]
  - CONVULSION [None]
  - RESTLESSNESS [None]
  - NERVOUSNESS [None]
  - FEAR [None]
